FAERS Safety Report 7191431-8 (Version None)
Quarter: 2010Q4

REPORT INFORMATION
  Report Type: 
  Country: None (occurrence: None)
  Receive Date: 20101223
  Receipt Date: 20100816
  Transmission Date: 20110411
  Serious: No
  Sender: FDA-Public Use
  Company Number: US-AMGEN-KDL431639

PATIENT

DRUGS (14)
  1. ENBREL [Suspect]
     Indication: PRODUCT USED FOR UNKNOWN INDICATION
     Dosage: 50 MG, 2 TIMES/WK
     Route: 058
  2. DULOXETIME HYDROCHLORIDE [Concomitant]
     Dosage: 20 MG, UNK
  3. ALPRAZOLAM [Concomitant]
     Dosage: .5 MG, UNK
  4. ZOLMITRIPTAN [Concomitant]
     Dosage: 25 MG, UNK
  5. DICLOFENAC SODIUM [Concomitant]
     Dosage: 1 %, UNK
  6. PREGABALIN [Concomitant]
     Dosage: 75 MG, UNK
  7. LEVOTHYROXINE SODIUM [Concomitant]
     Dosage: 100 MG, UNK
  8. AMLODIPINE + VALSARTAN [Concomitant]
     Dosage: 160 MG, UNK
  9. SIMVASTATIN [Concomitant]
     Dosage: 40 MG, UNK
  10. TRIAMCINOLONE [Concomitant]
     Dosage: .01 %, UNK
  11. BACLOFEN [Concomitant]
     Dosage: 10 MG, UNK
  12. ESOMEPRAZOLE MAGNESIUM [Concomitant]
     Dosage: 40 MG, UNK
  13. ESTRADIOL [Concomitant]
     Dosage: .025 MG, UNK
  14. DEXTROPROPOXYPHENE NAPSILATE W/ ACETAMINOPHEN [Concomitant]
     Dosage: UNK UNK, UNK

REACTIONS (2)
  - DIARRHOEA [None]
  - ERYTHEMA [None]
